FAERS Safety Report 17588734 (Version 1)
Quarter: 2020Q1

REPORT INFORMATION
  Report Type: Other
  Country: GB (occurrence: GB)
  Receive Date: 20200327
  Receipt Date: 20200327
  Transmission Date: 20200409
  Serious: No
  Sender: FDA-Public Use
  Company Number: GB-LUPIN PHARMACEUTICALS INC.-2019-07446

PATIENT
  Age: 21 Year
  Sex: Male
  Weight: 80 kg

DRUGS (1)
  1. SERTRALINE [Suspect]
     Active Substance: SERTRALINE HYDROCHLORIDE
     Indication: DEPRESSION
     Dosage: 1.5 DOSAGE FORM, QD
     Route: 048
     Dates: start: 20170927, end: 20190301

REACTIONS (1)
  - Skin exfoliation [Recovered/Resolved]

NARRATIVE: CASE EVENT DATE: 20180801
